FAERS Safety Report 18264659 (Version 4)
Quarter: 2021Q2

REPORT INFORMATION
  Report Type: Spontaneous
  Country: US (occurrence: US)
  Receive Date: 20200914
  Receipt Date: 20210513
  Transmission Date: 20210717
  Serious: Yes (Hospitalization, Other)
  Sender: FDA-Public Use
  Company Number: US-PFIZER INC-2020353138

PATIENT
  Age: 58 Year
  Sex: Female

DRUGS (5)
  1. XELJANZ XR [Suspect]
     Active Substance: TOFACITINIB CITRATE
     Indication: RHEUMATOID ARTHRITIS
     Dosage: 11 MG, DAILY
     Route: 048
     Dates: start: 202008, end: 20201023
  2. TYLENOL [Concomitant]
     Active Substance: ACETAMINOPHEN
     Dosage: UNK
  3. TRAMADOL. [Concomitant]
     Active Substance: TRAMADOL
     Dosage: UNK
  4. XELJANZ XR [Suspect]
     Active Substance: TOFACITINIB CITRATE
     Dosage: 11 MG, DAILY
     Route: 048
     Dates: start: 20201102, end: 20210428
  5. PREDNISONE. [Concomitant]
     Active Substance: PREDNISONE
     Dosage: 20 MG, DAILY

REACTIONS (23)
  - Asthma [Unknown]
  - Fatigue [Unknown]
  - Dry eye [Unknown]
  - Depressed mood [Unknown]
  - Contusion [Unknown]
  - Illness [Recovering/Resolving]
  - Constipation [Not Recovered/Not Resolved]
  - Energy increased [Unknown]
  - Night sweats [Unknown]
  - Sjogren^s syndrome [Unknown]
  - Loss of personal independence in daily activities [Recovering/Resolving]
  - Asthenia [Unknown]
  - Eye pain [Unknown]
  - Nail disorder [Unknown]
  - Condition aggravated [Unknown]
  - Haematuria [Unknown]
  - Alopecia [Unknown]
  - Therapeutic product effect incomplete [Unknown]
  - Cushing^s syndrome [Unknown]
  - Pain [Recovering/Resolving]
  - Headache [Unknown]
  - Skin disorder [Unknown]
  - Vitreous floaters [Unknown]

NARRATIVE: CASE EVENT DATE: 2020
